FAERS Safety Report 8551024-4 (Version None)
Quarter: 2012Q3

REPORT INFORMATION
  Report Type: 
  Country: None (occurrence: None)
  Receive Date: 20120723
  Receipt Date: 20120723
  Transmission Date: 20120928
  Serious: Yes (Other)
  Sender: FDA-Public Use
  Company Number: None

PATIENT
  Sex: Male

DRUGS (11)
  1. OMEPRAZOLE [Concomitant]
  2. ASPIRIN [Concomitant]
  3. ZETIA [Concomitant]
  4. COREG CR [Concomitant]
  5. SIMVASTATIN [Concomitant]
  6. CELEBREX [Concomitant]
  7. -NASENEX [Concomitant]
  8. -BENICER HCT [Concomitant]
  9. ACTIFED [Concomitant]
  10. FLUOROURACIL [Suspect]
     Indication: PRECANCEROUS SKIN LESION
     Dosage: 5% TWICE A DAY TOP
     Route: 061
     Dates: start: 20120531, end: 20120614
  11. PLAVIX [Concomitant]

REACTIONS (5)
  - EYE SWELLING [None]
  - ERYTHEMA [None]
  - OEDEMA PERIPHERAL [None]
  - HAEMORRHAGE [None]
  - SKIN EXFOLIATION [None]
